FAERS Safety Report 8536472-0 (Version None)
Quarter: 2012Q3

REPORT INFORMATION
  Report Type: 
  Country: None (occurrence: None)
  Receive Date: 20120725
  Receipt Date: 20120711
  Transmission Date: 20120928
  Serious: Yes (Hospitalization)
  Sender: FDA-Public Use
  Company Number: US-MYLANLABS-2012S1014483

PATIENT
  Age: 58 Year
  Sex: Male

DRUGS (1)
  1. AMIODARONE HYDROCHLORIDE [Suspect]
     Indication: CONGESTIVE CARDIOMYOPATHY
     Dosage: 400MG DAILY
     Route: 065

REACTIONS (3)
  - LYMPHOID TISSUE HYPERPLASIA [None]
  - LUNG DISORDER [None]
  - INTERSTITIAL LUNG DISEASE [None]
